FAERS Safety Report 6403589-6 (Version None)
Quarter: 2009Q4

REPORT INFORMATION
  Report Type: 
  Country: None (occurrence: None)
  Receive Date: 20091015
  Receipt Date: 20091015
  Transmission Date: 20100525
  Serious: No
  Sender: FDA-Public Use
  Company Number: None

PATIENT
  Sex: Female

DRUGS (1)
  1. SEPTOCAINE [Suspect]
     Indication: ANAESTHESIA

REACTIONS (3)
  - FACIAL NERVE DISORDER [None]
  - HYPOAESTHESIA ORAL [None]
  - PARAESTHESIA [None]
